FAERS Safety Report 24061215 (Version 1)
Quarter: 2024Q3

REPORT INFORMATION
  Report Type: Spontaneous
  Country: FR (occurrence: FR)
  Receive Date: 20240708
  Receipt Date: 20240708
  Transmission Date: 20241017
  Serious: Yes (Hospitalization)
  Sender: TEVA
  Company Number: None

PATIENT
  Age: 76 Year
  Sex: Female
  Weight: 53 kg

DRUGS (8)
  1. RAMIPRIL [Suspect]
     Active Substance: RAMIPRIL
     Indication: Hypertension
     Dosage: 5MG MORNING 2.5 MG EVENING
     Route: 048
     Dates: start: 202303, end: 20240521
  2. OXAZEPAM [Concomitant]
     Active Substance: OXAZEPAM
     Indication: Anxiety
     Dosage: 1 TABLET IF NEEDED
     Route: 048
     Dates: start: 20240516, end: 20240521
  3. HYALURONATE SODIUM [Concomitant]
     Active Substance: HYALURONATE SODIUM
     Indication: Dry eye
     Dosage: AT LEAST ONCE A DAY
     Route: 065
     Dates: start: 20240507, end: 20240521
  4. CALCIUM VITAMINE D3 BIOGARAN [Concomitant]
     Indication: Vitamin supplementation
     Dosage: PRESCRIBED 2/DAY BUT PATIENT ONLY TAKES 1, CALCIUM VITAMIN D3 BIOGARAN 500 MG/400 IU, TABLET TO SUCK
     Route: 048
     Dates: start: 20240507, end: 20240521
  5. SIMVASTATIN [Concomitant]
     Active Substance: SIMVASTATIN
     Indication: Hypercholesterolaemia
     Dosage: 20MG MORNING
     Route: 048
     Dates: start: 2023
  6. PAROXETINE [Suspect]
     Active Substance: PAROXETINE
     Indication: Depression
     Dosage: 0-0-1, PAROXETINE HYDROCHLORIDE ANHYDROUS
     Route: 048
     Dates: start: 20240516, end: 20240521
  7. LAMALINE [Concomitant]
     Indication: Pain
     Dosage: IF PAIN NOT RELIEVED BY PARACETAMOL
     Route: 048
     Dates: start: 20240507, end: 20240521
  8. ACETAMINOPHEN [Concomitant]
     Active Substance: ACETAMINOPHEN
     Indication: Pain
     Route: 048
     Dates: start: 20240507, end: 20240521

REACTIONS (1)
  - Hyponatraemia [Recovering/Resolving]

NARRATIVE: CASE EVENT DATE: 20240521
